FAERS Safety Report 6809255-7 (Version None)
Quarter: 2010Q2

REPORT INFORMATION
  Report Type: 
  Country: None (occurrence: None)
  Receive Date: 20100630
  Receipt Date: 20100622
  Transmission Date: 20101027
  Serious: Yes (Life-Threatening, Disabling, Other)
  Sender: FDA-Public Use
  Company Number: US-BAYER-201026161NA

PATIENT
  Sex: Female

DRUGS (1)
  1. YAZ [Suspect]
     Indication: DRUG USE FOR UNKNOWN INDICATION
     Route: 048
     Dates: start: 20061212

REACTIONS (5)
  - ARTERIAL THROMBOSIS LIMB [None]
  - CEREBROVASCULAR ACCIDENT [None]
  - HAND AMPUTATION [None]
  - HEMIPARESIS [None]
  - RESPIRATORY FAILURE [None]
